FAERS Safety Report 6842641-8 (Version None)
Quarter: 2010Q3

REPORT INFORMATION
  Report Type: 
  Country: None (occurrence: None)
  Receive Date: 20100714
  Receipt Date: 20070801
  Transmission Date: 20110219
  Serious: No
  Sender: FDA-Public Use
  Company Number: US-PFIZER INC-2007065262

PATIENT
  Sex: Male
  Weight: 83.9 kg

DRUGS (4)
  1. CHANTIX [Suspect]
     Indication: SMOKING CESSATION THERAPY
     Dates: start: 20061001
  2. SOMA [Concomitant]
  3. HYDROCODONE [Concomitant]
  4. ALL OTHER THERAPEUTIC PRODUCTS [Concomitant]

REACTIONS (3)
  - ABDOMINAL PAIN UPPER [None]
  - GASTRIC DISORDER [None]
  - INCORRECT DRUG DOSAGE FORM ADMINISTERED [None]
